FAERS Safety Report 15413619 (Version 1)
Quarter: 2018Q3

REPORT INFORMATION
  Report Type: Spontaneous
  Country: CZ (occurrence: CZ)
  Receive Date: 20180921
  Receipt Date: 20180921
  Transmission Date: 20181010
  Serious: Yes (Hospitalization)
  Sender: FDA-Public Use
  Company Number: CZ-CHIESI USA INC.-CZ-2018CHI000267

PATIENT
  Age: 20 Year
  Sex: Male

DRUGS (3)
  1. CUROSURF [Suspect]
     Active Substance: PORACTANT ALFA
     Indication: OFF LABEL USE
  2. CUROSURF [Suspect]
     Active Substance: PORACTANT ALFA
     Indication: PROPHYLAXIS
  3. CUROSURF [Suspect]
     Active Substance: PORACTANT ALFA
     Indication: PNEUMOTHORAX
     Dosage: UNK
     Route: 039

REACTIONS (6)
  - Pulmonary necrosis [Recovered/Resolved]
  - Off label use [Unknown]
  - Pulmonary air leakage [Recovered/Resolved]
  - Pulmonary fibrosis [Recovered/Resolved]
  - Oesophageal rupture [Recovered/Resolved]
  - Pneumothorax [Recovered/Resolved]
